FAERS Safety Report 7993502-2 (Version None)
Quarter: 2011Q4

REPORT INFORMATION
  Report Type: 
  Country: None (occurrence: None)
  Receive Date: 20111219
  Receipt Date: 20111209
  Transmission Date: 20120403
  Serious: Yes (Hospitalization, Other)
  Sender: FDA-Public Use
  Company Number: US-ABBOTT-11P-163-0866891-00

PATIENT
  Sex: Female
  Weight: 100.79 kg

DRUGS (11)
  1. HUMIRA [Suspect]
     Indication: RHEUMATOID ARTHRITIS
     Route: 058
     Dates: start: 20110111, end: 20110830
  2. LEVOTHYROXINE SODIUM [Concomitant]
     Indication: HYPOTHYROIDISM
  3. METHOTREXATE [Concomitant]
     Indication: RHEUMATOID ARTHRITIS
     Dates: end: 20110801
  4. LIDOCAINE PADS [Concomitant]
     Indication: ARTHRALGIA
  5. TYLENOL-500 [Concomitant]
     Indication: RHEUMATOID ARTHRITIS
  6. METFORMIN HCL [Concomitant]
     Indication: DIABETES MELLITUS
  7. LISINOPRIL [Concomitant]
     Indication: HYPERTENSION
  8. METHOTREXATE [Concomitant]
  9. NABUMETONE [Concomitant]
     Indication: RHEUMATOID ARTHRITIS
  10. VICODIN [Concomitant]
     Indication: PRODUCT USED FOR UNKNOWN INDICATION
  11. LEVOTHYROXINE SODIUM [Concomitant]
     Indication: DIABETES MELLITUS

REACTIONS (8)
  - DRUG EFFECT DELAYED [None]
  - PAIN [None]
  - SWELLING [None]
  - APPENDICITIS PERFORATED [None]
  - PYREXIA [None]
  - RHEUMATOID ARTHRITIS [None]
  - ABDOMINAL WOUND DEHISCENCE [None]
  - POSTOPERATIVE WOUND INFECTION [None]
